FAERS Safety Report 4475202-9 (Version None)
Quarter: 2004Q4

REPORT INFORMATION
  Report Type: 
  Country: None (occurrence: None)
  Receive Date: 20041012
  Receipt Date: 20040930
  Transmission Date: 20050328
  Serious: Yes (Hospitalization)
  Sender: FDA-Public Use
  Company Number: ZICO001106

PATIENT
  Age: 47 Year
  Sex: Female
  Weight: 75.4 kg

DRUGS (10)
  1. ZICONOTIDE [Suspect]
     Indication: PAIN
     Dosage: 0.49 MCG/HR INTRATHECAL
     Route: 037
     Dates: start: 20040630, end: 20040902
  2. VALPROATE SODIUM [Concomitant]
  3. LYNESTRENOL (LYNESTRENOL) [Concomitant]
  4. GABAPENTIN [Concomitant]
  5. BISOPROLOL FUMARATE [Concomitant]
  6. LEVOMEPROMAZINE (LEVOMEPROMAZINE) [Concomitant]
  7. ZOPLICONE (ZOPICLONE) [Concomitant]
  8. TETRAZEPAM (TETRAZEPAM) [Concomitant]
  9. MACROGOL (MACROGOL) [Concomitant]
  10. EPIPROPANE (PHENOBARBITAL) [Concomitant]

REACTIONS (4)
  - DELIRIUM [None]
  - DISORIENTATION [None]
  - PSYCHOTIC DISORDER [None]
  - SOMNOLENCE [None]
